FAERS Safety Report 6726347-1 (Version None)
Quarter: 2010Q2

REPORT INFORMATION
  Report Type: 
  Country: None (occurrence: None)
  Receive Date: 20100514
  Receipt Date: 20100507
  Transmission Date: 20101027
  Serious: Yes (Hospitalization)
  Sender: FDA-Public Use
  Company Number: A0800846A

PATIENT
  Age: 36 Year
  Sex: Female

DRUGS (1)
  1. AVANDIA [Suspect]
     Dosage: 4U TWICE PER DAY
     Route: 048
     Dates: start: 20040101, end: 20060901

REACTIONS (1)
  - CEREBROVASCULAR ACCIDENT [None]
